FAERS Safety Report 16701680 (Version 1)
Quarter: 2019Q3

REPORT INFORMATION
  Report Type: Spontaneous
  Country: US (occurrence: US)
  Receive Date: 20190814
  Receipt Date: 20190814
  Transmission Date: 20191004
  Serious: Yes (Other)
  Sender: FDA-Public Use
  Company Number: US-ELI_LILLY_AND_COMPANY-US201908004258

PATIENT
  Sex: Female

DRUGS (4)
  1. HUMULIN 70/30 [Suspect]
     Active Substance: INSULIN HUMAN
     Indication: TYPE 2 DIABETES MELLITUS
     Dosage: 60 U, DAILY
     Route: 058
     Dates: start: 2014
  2. HUMULIN 70/30 [Suspect]
     Active Substance: INSULIN HUMAN
     Dosage: 6 U, EACH EVENING
     Route: 058
  3. HUMULIN 70/30 [Suspect]
     Active Substance: INSULIN HUMAN
     Dosage: 8 U, EACH MORNING
     Route: 058
  4. TOUJEO [Concomitant]
     Active Substance: INSULIN GLARGINE
     Indication: TYPE 2 DIABETES MELLITUS
     Dosage: .75MG/.5ML, WEEKLY (1/W)
     Dates: start: 201904

REACTIONS (3)
  - Gait inability [Unknown]
  - Hepatic infection [Unknown]
  - Pneumonia [Unknown]
